FAERS Safety Report 9476026 (Version 2)
Quarter: 2013Q3

REPORT INFORMATION
  Report Type: Spontaneous
  Country: US (occurrence: US)
  Receive Date: 20130826
  Receipt Date: 20130913
  Transmission Date: 20140515
  Serious: Yes (Other)
  Sender: FDA-Public Use
  Company Number: US-PFIZER INC-2013243393

PATIENT
  Age: 72 Year
  Sex: Female
  Weight: 68.03 kg

DRUGS (1)
  1. XALATAN [Suspect]
     Indication: PROPHYLAXIS
     Dosage: UNK
     Route: 047

REACTIONS (2)
  - Cataract [Unknown]
  - Blood cholesterol increased [Unknown]
